FAERS Safety Report 16083410 (Version 2)
Quarter: 2019Q1

REPORT INFORMATION
  Report Type: Spontaneous
  Country: AU (occurrence: AU)
  Receive Date: 20190318
  Receipt Date: 20190323
  Transmission Date: 20190418
  Serious: Yes (Death)
  Sender: FDA-Public Use
  Company Number: AU-IPSEN BIOPHARMACEUTICALS, INC.-2019-04075

PATIENT
  Sex: Female

DRUGS (1)
  1. DYSPORT [Suspect]
     Active Substance: ABOBOTULINUMTOXINA
     Indication: SKIN COSMETIC PROCEDURE
     Dosage: NOT REPORTED
     Route: 065

REACTIONS (1)
  - Death [Fatal]

NARRATIVE: CASE EVENT DATE: 20181202
